FAERS Safety Report 11121753 (Version 1)
Quarter: 2015Q2

REPORT INFORMATION
  Report Type: Spontaneous
  Country: None (occurrence: None)
  Receive Date: 20150518
  Receipt Date: 20150518
  Transmission Date: 20150821
  Serious: No
  Sender: FDA-Public Use
  Company Number: None

PATIENT
  Age: 61 Year
  Sex: Female
  Weight: 56.7 kg

DRUGS (10)
  1. CO A 10 [Concomitant]
  2. ATIVAN [Concomitant]
     Active Substance: LORAZEPAM
  3. ALPH LIPOID ACID [Concomitant]
  4. GABAPENTIN. [Suspect]
     Active Substance: GABAPENTIN
     Indication: NEUROPATHY PERIPHERAL
     Route: 048
  5. PROVASTATIN [Concomitant]
  6. NEXIUM [Concomitant]
     Active Substance: ESOMEPRAZOLE MAGNESIUM
  7. CALCIUM [Concomitant]
     Active Substance: CALCIUM
  8. LOVAZA [Concomitant]
     Active Substance: OMEGA-3-ACID ETHYL ESTERS
  9. MAGNESIUM [Concomitant]
     Active Substance: MAGNESIUM
  10. METAMUCIL [Concomitant]
     Active Substance: PLANTAGO SEED

REACTIONS (1)
  - Anorgasmia [None]

NARRATIVE: CASE EVENT DATE: 20150409
